FAERS Safety Report 25474409 (Version 2)
Quarter: 2025Q3

REPORT INFORMATION
  Report Type: Other
  Country: CA (occurrence: CA)
  Receive Date: 20250624
  Receipt Date: 20250723
  Transmission Date: 20251021
  Serious: Yes (Other)
  Sender: KAMADA LTD.
  Company Number: CA-KI BIOPHARMA, LLC-2025KAM00011

PATIENT
  Sex: Female

DRUGS (2)
  1. WINRHO SDF [Suspect]
     Active Substance: HUMAN RHO(D) IMMUNE GLOBULIN
     Indication: Rhesus antigen negative
     Route: 042
     Dates: start: 2024, end: 2024
  2. WINRHO SDF [Suspect]
     Active Substance: HUMAN RHO(D) IMMUNE GLOBULIN
     Indication: Blood group O
     Route: 042
     Dates: start: 2024, end: 2024

REACTIONS (12)
  - Cyanosis central [Recovered/Resolved]
  - Transfusion-related circulatory overload [Recovered/Resolved]
  - Anxiety [Recovered/Resolved]
  - Atelectasis [Recovered/Resolved]
  - Febrile nonhaemolytic transfusion reaction [Recovered/Resolved]
  - Hyponatraemia [Recovered/Resolved]
  - Leukocytosis [Recovered/Resolved]
  - Tachypnoea [Recovered/Resolved]
  - Heart rate increased [Recovered/Resolved]
  - Chills [Recovered/Resolved]
  - Tachycardia [Recovered/Resolved]
  - Pallor [Recovered/Resolved]
